FAERS Safety Report 4656961-9 (Version None)
Quarter: 2005Q2

REPORT INFORMATION
  Report Type: 
  Country: None (occurrence: None)
  Receive Date: 20050506
  Receipt Date: 20050421
  Transmission Date: 20051028
  Serious: Yes (Death, Hospitalization)
  Sender: FDA-Public Use
  Company Number: 10955

PATIENT
  Age: 50 Year
  Sex: Male

DRUGS (1)
  1. METHOTREXATE [Suspect]
     Indication: MENINGITIS
     Dosage: 20 MG 2/WK
     Route: 037
     Dates: start: 20030801, end: 20030908

REACTIONS (4)
  - GENERAL PHYSICAL HEALTH DETERIORATION [None]
  - MENINGITIS BACTERIAL [None]
  - PANCYTOPENIA [None]
  - THERAPY NON-RESPONDER [None]
